FAERS Safety Report 8402489-X (Version None)
Quarter: 2012Q2

REPORT INFORMATION
  Report Type: 
  Country: None (occurrence: None)
  Receive Date: 20120601
  Receipt Date: 20120530
  Transmission Date: 20120825
  Serious: Yes (Death)
  Sender: FDA-Public Use
  Company Number: US-ROCHE-1073597

PATIENT
  Sex: Female
  Weight: 56.75 kg

DRUGS (3)
  1. ACTEMRA [Suspect]
     Indication: RHEUMATOID ARTHRITIS
     Route: 042
     Dates: start: 20120320
  2. ACTEMRA [Suspect]
     Route: 042
     Dates: start: 20120501
  3. ACTEMRA [Suspect]
     Route: 042
     Dates: start: 20120530

REACTIONS (1)
  - DEATH [None]
